FAERS Safety Report 24886625 (Version 1)
Quarter: 2025Q1

REPORT INFORMATION
  Report Type: Report from Study
  Country: CR (occurrence: CR)
  Receive Date: 20250126
  Receipt Date: 20250126
  Transmission Date: 20250408
  Serious: Yes (Hospitalization)
  Sender: ROCHE
  Company Number: CR-ROCHE-10000184649

PATIENT
  Age: 54 Year
  Sex: Female

DRUGS (1)
  1. OCREVUS [Suspect]
     Active Substance: OCRELIZUMAB
     Indication: Multiple sclerosis
     Dosage: DOSE WAS NOT REPORTED
     Route: 042
     Dates: start: 20240811

REACTIONS (4)
  - Pneumonia [Recovered/Resolved]
  - Hyperglycaemia [Unknown]
  - Leukocytosis [Unknown]
  - C-reactive protein increased [Unknown]

NARRATIVE: CASE EVENT DATE: 20241231
